FAERS Safety Report 21308515 (Version 5)
Quarter: 2022Q4

REPORT INFORMATION
  Report Type: Report from Study
  Country: US (occurrence: US)
  Receive Date: 20220908
  Receipt Date: 20221220
  Transmission Date: 20230113
  Serious: Yes (Other)
  Sender: FDA-Public Use
  Company Number: US-NOVARTISTESTPH-NVSC2022US202300

PATIENT
  Sex: Male

DRUGS (3)
  1. ENTRESTO [Suspect]
     Active Substance: SACUBITRIL\VALSARTAN
     Indication: Cardiac failure
     Dosage: 50 MG, BID
     Route: 048
     Dates: start: 202207
  2. LOSARTAN [Concomitant]
     Active Substance: LOSARTAN
     Indication: Product used for unknown indication
     Dosage: UNK
     Route: 065
  3. ELIQUIS [Concomitant]
     Active Substance: APIXABAN
     Indication: Product used for unknown indication
     Dosage: UNK
     Route: 065

REACTIONS (13)
  - Gastrointestinal haemorrhage [Recovered/Resolved]
  - Cerebrovascular accident [Unknown]
  - Hypoaesthesia [Recovering/Resolving]
  - Gait disturbance [Recovered/Resolved]
  - Hemiparesis [Recovering/Resolving]
  - Transient ischaemic attack [Unknown]
  - Weight decreased [Recovering/Resolving]
  - Back pain [Recovering/Resolving]
  - Gait inability [Not Recovered/Not Resolved]
  - Anaemia [Not Recovered/Not Resolved]
  - Movement disorder [Not Recovered/Not Resolved]
  - Gastric polyps [Unknown]
  - Benign gastric neoplasm [Unknown]

NARRATIVE: CASE EVENT DATE: 20220101
